FAERS Safety Report 5052880-7 (Version None)
Quarter: 2006Q3

REPORT INFORMATION
  Report Type: 
  Country: None (occurrence: None)
  Receive Date: 20060712
  Receipt Date: 20060703
  Transmission Date: 20061208
  Serious: Yes (Other)
  Sender: FDA-Public Use
  Company Number: 2006BI003730

PATIENT
  Age: 48 Year
  Sex: Female
  Weight: 49.8957 kg

DRUGS (4)
  1. AVONEX [Suspect]
     Indication: MULTIPLE SCLEROSIS
     Dosage: 30 UG; QW; IM
     Route: 030
     Dates: start: 20040401, end: 20060328
  2. SYNTHROID [Concomitant]
  3. FEMARA [Concomitant]
  4. TAMOXIFEN [Concomitant]

REACTIONS (3)
  - BLADDER DISORDER [None]
  - BREAST CANCER FEMALE [None]
  - PALPITATIONS [None]
